FAERS Safety Report 20148702 (Version 1)
Quarter: 2021Q4

REPORT INFORMATION
  Report Type: Spontaneous
  Country: FR (occurrence: FR)
  Receive Date: 20211204
  Receipt Date: 20211204
  Transmission Date: 20220303
  Serious: Yes (Hospitalization, Other)
  Sender: FDA-Public Use
  Company Number: None

PATIENT
  Age: 83 Year
  Sex: Male

DRUGS (4)
  1. CIPROFLOXACIN HYDROCHLORIDE [Suspect]
     Active Substance: CIPROFLOXACIN HYDROCHLORIDE
     Indication: Brain empyema
     Dosage: 1000 MG, QD (500 MG X 2 PER DAY)
     Route: 048
     Dates: start: 20210930, end: 20211104
  2. CEFTAZIDIME [Suspect]
     Active Substance: CEFTAZIDIME
     Indication: Brain empyema
     Dosage: 6 G, QD (2G X 3 PER DAY)
     Route: 041
     Dates: start: 20210930, end: 20211101
  3. KEPPRA [Suspect]
     Active Substance: LEVETIRACETAM
     Indication: Brain empyema
     Dosage: 1000 MG, QD (500 MG X 2 PER DAY)
     Route: 048
     Dates: start: 20210915, end: 20211029
  4. FLAGYL [Suspect]
     Active Substance: METRONIDAZOLE\METRONIDAZOLE HYDROCHLORIDE
     Indication: Brain empyema
     Dosage: 1500 MG, QD (500 MG X 3 PER DAY)
     Route: 041
     Dates: start: 20210930, end: 20211028

REACTIONS (2)
  - Systemic lupus erythematosus [Recovered/Resolved]
  - Rash maculo-papular [Recovered/Resolved]

NARRATIVE: CASE EVENT DATE: 20211022
